FAERS Safety Report 5206235-2 (Version None)
Quarter: 2006Q4

REPORT INFORMATION
  Report Type: 
  Country: None (occurrence: None)
  Receive Date: 20061026
  Receipt Date: 20060818
  Transmission Date: 20070319
  Serious: No
  Sender: FDA-Public Use
  Company Number: 2005168706

PATIENT
  Sex: Female

DRUGS (7)
  1. LYRICA [Suspect]
     Indication: NEURALGIA
     Dosage: 200 MG (100 MG, 2 IN 1 D), ORAL
     Route: 048
     Dates: start: 20051114, end: 20060101
  2. PREMARIN [Concomitant]
  3. MYSOLINE [Concomitant]
  4. TENORMIN [Concomitant]
  5. EFFEXOR [Concomitant]
  6. ELAVIL [Concomitant]
  7. PERCOCET [Concomitant]

REACTIONS (4)
  - RASH [None]
  - UNEVALUABLE EVENT [None]
  - VISION BLURRED [None]
  - WEIGHT INCREASED [None]
